FAERS Safety Report 8926919 (Version 1)
Quarter: 2012Q4

REPORT INFORMATION
  Report Type: 
  Country: GB (occurrence: GB)
  Receive Date: 20121127
  Receipt Date: 20121127
  Transmission Date: 20130627
  Serious: Yes (Hospitalization)
  Sender: FDA-Public Use
  Company Number: GB-PFIZER INC-2012293899

PATIENT
  Age: 38 Year
  Sex: Female
  Weight: 50 kg

DRUGS (8)
  1. GENOTROPIN [Suspect]
     Indication: GROWTH HORMONE DEFICIENCY
     Dosage: 0.8 mg, 1x/day,7 injections/week.
     Route: 058
     Dates: start: 20000403
  2. THYROXINE [Concomitant]
     Indication: TSH DECREASED
     Dosage: UNK
     Dates: start: 19890101
  3. THYROXINE [Concomitant]
     Indication: PRIMARY HYPOTHYROIDISM
  4. HYDROCORTISONE [Concomitant]
     Indication: ACTH DECREASED
     Dosage: UNK
     Dates: start: 19970201
  5. KLIOGEST ^NOVO INDUSTRI^ [Concomitant]
     Indication: LUTEINIZING HORMONE DEFICIENCY
     Dosage: UNK
     Dates: start: 20061115
  6. KLIOGEST ^NOVO INDUSTRI^ [Concomitant]
     Indication: FOLLICLE-STIMULATING HORMONE DEFICIENCY
  7. KLIOGEST ^NOVO INDUSTRI^ [Concomitant]
     Indication: OVARIAN DISORDER
  8. KLIOGEST ^NOVO INDUSTRI^ [Concomitant]
     Indication: HYPOGONADISM

REACTIONS (1)
  - Endocrine disorder [Unknown]
